FAERS Safety Report 7347365-9 (Version None)
Quarter: 2011Q1

REPORT INFORMATION
  Report Type: 
  Country: None (occurrence: None)
  Receive Date: 20110311
  Receipt Date: 20110303
  Transmission Date: 20110831
  Serious: Yes (Other)
  Sender: FDA-Public Use
  Company Number: FR-ROCHE-763611

PATIENT
  Sex: Female

DRUGS (8)
  1. SOLU-MEDROL [Suspect]
     Route: 050
     Dates: start: 20101229
  2. NEURONTIN [Suspect]
     Indication: PAIN
     Dosage: PER OS
     Route: 050
     Dates: start: 20101130, end: 20110110
  3. HALDOL [Suspect]
     Indication: CONFUSIONAL STATE
     Route: 048
     Dates: start: 20101224, end: 20101230
  4. ROCEPHIN [Suspect]
     Route: 030
     Dates: start: 20101201, end: 20110103
  5. XARELTO [Suspect]
     Indication: PROPHYLAXIS
     Dosage: 1 DOSE DAILY, PER OS
     Route: 050
     Dates: start: 20101214, end: 20110110
  6. SOLUPRED [Suspect]
     Dosage: DOSAGE OF 40 MG DAILY FOR 3 DAYS THEN 20 MG DAILY
     Route: 048
     Dates: start: 20101229
  7. FOZITEC [Suspect]
     Dosage: PER OS
     Route: 050
     Dates: start: 20101229
  8. BACTRIM [Suspect]
     Route: 048
     Dates: start: 20101001, end: 20101230

REACTIONS (2)
  - COLITIS ISCHAEMIC [None]
  - DIARRHOEA [None]
